FAERS Safety Report 17143013 (Version 2)
Quarter: 2020Q4

REPORT INFORMATION
  Report Type: Spontaneous
  Country: US (occurrence: US)
  Receive Date: 20191211
  Receipt Date: 20201216
  Transmission Date: 20210113
  Serious: Yes (Hospitalization, Other)
  Sender: FDA-Public Use
  Company Number: US-NAPPMUNDI-USA-2019-0149141

PATIENT
  Sex: Male

DRUGS (12)
  1. DILAUDID [Suspect]
     Active Substance: HYDROMORPHONE HYDROCHLORIDE
     Dosage: 1 MG, UNK
     Route: 048
  2. DILAUDID [Suspect]
     Active Substance: HYDROMORPHONE HYDROCHLORIDE
     Dosage: 3.8 MG, EVERY 1 MINS
     Route: 048
  3. NALOXONE [Concomitant]
     Active Substance: NALOXONE
     Indication: PRODUCT USED FOR UNKNOWN INDICATION
     Dosage: .4 MG, IV PUSH
     Route: 065
  4. MORPHINE SULFATE (SIMILAR TO NDA 19-516) [Suspect]
     Active Substance: MORPHINE SULFATE
     Indication: SICKLE CELL DISEASE
     Dosage: UNK
     Route: 048
     Dates: start: 2012
  5. DILAUDID [Suspect]
     Active Substance: HYDROMORPHONE HYDROCHLORIDE
     Dosage: 1.5 MG, EVERY 15 MINS
     Route: 048
  6. DILAUDID [Suspect]
     Active Substance: HYDROMORPHONE HYDROCHLORIDE
     Dosage: 2.5 MG, EVERY 15 MINS
     Route: 048
     Dates: start: 2018
  7. MELATONIN [Concomitant]
     Active Substance: MELATONIN
     Indication: INSOMNIA
     Dosage: 2 TABLET, DAILY
     Route: 048
  8. DOCUSATE PLUS SENNA [Concomitant]
     Active Substance: DOCUSATE SODIUM\SENNOSIDES A AND B
     Indication: PRODUCT USED FOR UNKNOWN INDICATION
     Dosage: 1 TABLET, BID
     Route: 048
  9. HYDROMORPHONE HCL (SIMILAR TO 19-892) [Suspect]
     Active Substance: HYDROMORPHONE HYDROCHLORIDE
     Indication: SICKLE CELL DISEASE
     Dosage: UNK
     Route: 048
     Dates: start: 2012
  10. MS CONTIN [Suspect]
     Active Substance: MORPHINE SULFATE
     Indication: SICKLE CELL DISEASE
     Dosage: 10 MG, Q8H
     Route: 048
     Dates: start: 2013
  11. DILAUDID [Suspect]
     Active Substance: HYDROMORPHONE HYDROCHLORIDE
     Indication: SICKLE CELL DISEASE
     Dosage: 80 MG, Q8H
     Route: 048
     Dates: start: 2013
  12. IBUPROFEN. [Concomitant]
     Active Substance: IBUPROFEN
     Indication: PRODUCT USED FOR UNKNOWN INDICATION
     Dosage: 600 MG, Q6H
     Route: 048

REACTIONS (5)
  - Hospitalisation [Unknown]
  - Social avoidant behaviour [Unknown]
  - Communication disorder [Unknown]
  - Drug dependence [Unknown]
  - Pain [Unknown]

NARRATIVE: CASE EVENT DATE: 2019
